FAERS Safety Report 13593284 (Version 1)
Quarter: 2017Q2

REPORT INFORMATION
  Report Type: Spontaneous
  Country: GB (occurrence: GB)
  Receive Date: 20170530
  Receipt Date: 20170530
  Transmission Date: 20170830
  Serious: Yes (Other)
  Sender: FDA-Public Use
  Company Number: GB-TORRENT-00015308

PATIENT
  Sex: Male

DRUGS (4)
  1. LAMOTRIGINE. [Concomitant]
     Active Substance: LAMOTRIGINE
  2. LEVETIRACETAM. [Suspect]
     Active Substance: LEVETIRACETAM
  3. BRIVIACT [Suspect]
     Active Substance: BRIVARACETAM
  4. VIMPAT [Suspect]
     Active Substance: LACOSAMIDE

REACTIONS (4)
  - Seizure [Unknown]
  - Postictal psychosis [Unknown]
  - Confusional state [Unknown]
  - Off label use [Unknown]
